FAERS Safety Report 7358436-5 (Version None)
Quarter: 2011Q1

REPORT INFORMATION
  Report Type: 
  Country: None (occurrence: None)
  Receive Date: 20110307
  Receipt Date: 20060909
  Transmission Date: 20110831
  Serious: No
  Sender: FDA-Public Use
  Company Number: 200610272BBE

PATIENT
  Age: 57 Year
  Sex: Female
  Weight: 90.7194 kg

DRUGS (14)
  1. CALTRATE + D /00944201/ [Concomitant]
  2. PROLASTIN [Suspect]
     Indication: ALPHA-1 ANTI-TRYPSIN DEFICIENCY
     Dosage: 5500 MG; 1X; IV
     Route: 042
     Dates: start: 19880101
  3. PROVENTIL /00139501/ [Concomitant]
  4. KLONOPIN [Concomitant]
  5. ASPIRIN [Concomitant]
  6. AEROBID [Concomitant]
  7. CLONAZEPAM [Concomitant]
  8. ADVAIR DISKUS 100/50 [Concomitant]
  9. CALCIUM [Concomitant]
  10. SPIRIVA [Concomitant]
  11. ATROVENT [Concomitant]
  12. PAXIL [Concomitant]
  13. PREMARIN [Concomitant]
  14. ACTONEL [Concomitant]

REACTIONS (6)
  - HOT FLUSH [None]
  - ANXIETY [None]
  - HEADACHE [None]
  - DEPRESSION [None]
  - POLLAKIURIA [None]
  - HYPERVENTILATION [None]
